FAERS Safety Report 8567701-5 (Version None)
Quarter: 2012Q3

REPORT INFORMATION
  Report Type: 
  Country: None (occurrence: None)
  Receive Date: 20120803
  Receipt Date: 20120723
  Transmission Date: 20120928
  Serious: Yes (Hospitalization)
  Sender: FDA-Public Use
  Company Number: FR-ELI_LILLY_AND_COMPANY-FR201003004832

PATIENT
  Age: 40 Year
  Sex: Male

DRUGS (7)
  1. COZAAR [Concomitant]
     Route: 048
  2. DEPAKOTE [Concomitant]
     Route: 048
  3. ATARAX [Concomitant]
     Route: 048
  4. LASIX [Concomitant]
  5. ZYPREXA [Suspect]
     Dosage: 20 MG, DAILY (1/D)
     Route: 048
     Dates: start: 20100107, end: 20100112
  6. ZYPREXA [Suspect]
     Dosage: 5 MG, DAILY (1/D)
     Route: 048
     Dates: start: 20100118
  7. LEVOTHYROXINE SODIUM [Concomitant]
     Route: 048

REACTIONS (1)
  - PARKINSONISM [None]
